FAERS Safety Report 22172493 (Version 1)
Quarter: 2023Q2

REPORT INFORMATION
  Report Type: Spontaneous
  Country: US (occurrence: None)
  Receive Date: 20230403
  Receipt Date: 20230403
  Transmission Date: 20230722
  Serious: Yes (Other)
  Sender: FDA-Public Use
  Company Number: None

PATIENT
  Age: 49 Year
  Sex: Female

DRUGS (5)
  1. AIMOVIG [Suspect]
     Active Substance: ERENUMAB-AOOE
     Indication: Migraine
     Dosage: FREQUENCY : MONTHLY;?
     Route: 058
  2. Lisinopril HCTZ  20/12.5 [Concomitant]
  3. ONDANSETRON [Concomitant]
     Active Substance: ONDANSETRON
  4. Riboflavin 400mg [Concomitant]
  5. Magnesium 250mg [Concomitant]

REACTIONS (3)
  - Injection site reaction [None]
  - Injection site erythema [None]
  - Injection site vesicles [None]

NARRATIVE: CASE EVENT DATE: 20230310
